FAERS Safety Report 24207803 (Version 1)
Quarter: 2024Q3

REPORT INFORMATION
  Report Type: Spontaneous
  Country: CN (occurrence: CN)
  Receive Date: 20240814
  Receipt Date: 20240814
  Transmission Date: 20241016
  Serious: Yes (Other)
  Sender: ROCHE
  Company Number: CN-ROCHE-10000055260

PATIENT
  Age: 77 Year
  Sex: Male

DRUGS (1)
  1. GAZYVA [Suspect]
     Active Substance: OBINUTUZUMAB
     Indication: Lymphoplasmacytoid lymphoma/immunocytoma
     Route: 042
     Dates: start: 20240722, end: 20240723

REACTIONS (6)
  - Cyanosis [Recovering/Resolving]
  - Cold sweat [Recovering/Resolving]
  - Tremor [Recovering/Resolving]
  - Blood pressure increased [Recovering/Resolving]
  - Oxygen saturation decreased [Recovering/Resolving]
  - Heart rate increased [Recovering/Resolving]

NARRATIVE: CASE EVENT DATE: 20240722
